FAERS Safety Report 16972383 (Version 2)
Quarter: 2019Q4

REPORT INFORMATION
  Report Type: Spontaneous
  Country: PL (occurrence: PL)
  Receive Date: 20191029
  Receipt Date: 20191106
  Transmission Date: 20200122
  Serious: Yes (Other)
  Sender: FDA-Public Use
  Company Number: PL-BAXTER-2019BAX021766

PATIENT
  Age: 55 Year
  Sex: Female

DRUGS (8)
  1. DACARBAZINA [Suspect]
     Active Substance: DACARBAZINE
     Indication: METASTATIC NEOPLASM
     Route: 065
  2. DOCETAXEL. [Suspect]
     Active Substance: DOCETAXEL
     Indication: METASTATIC NEOPLASM
     Route: 042
  3. PAZOPANIB [Suspect]
     Active Substance: PAZOPANIB
     Indication: METASTATIC NEOPLASM
     Route: 065
  4. CISPLATIN. [Suspect]
     Active Substance: CISPLATIN
     Indication: METASTATIC NEOPLASM
     Route: 065
  5. HOLOXAN [Suspect]
     Active Substance: IFOSFAMIDE
     Indication: METASTATIC NEOPLASM
     Route: 065
  6. DOXIL [Suspect]
     Active Substance: DOXORUBICIN HYDROCHLORIDE
     Indication: METASTATIC NEOPLASM
     Dosage: INJECTION
     Route: 065
  7. ENDOXAN [Suspect]
     Active Substance: CYCLOPHOSPHAMIDE
     Indication: METASTATIC NEOPLASM
     Route: 042
  8. GEMCITABINE. [Suspect]
     Active Substance: GEMCITABINE
     Indication: METASTATIC NEOPLASM
     Route: 065

REACTIONS (3)
  - Drug ineffective [Unknown]
  - Off label use [Unknown]
  - Product use in unapproved indication [Unknown]
